FAERS Safety Report 13621950 (Version 1)
Quarter: 2017Q2

REPORT INFORMATION
  Report Type: Spontaneous
  Country: US (occurrence: US)
  Receive Date: 20170607
  Receipt Date: 20170607
  Transmission Date: 20170830
  Serious: No
  Sender: FDA-Public Use
  Company Number: US-ROCHE-1809611

PATIENT
  Sex: Female

DRUGS (3)
  1. TYKERB [Concomitant]
     Active Substance: LAPATINIB DITOSYLATE
     Route: 048
     Dates: start: 20160803
  2. XELODA [Suspect]
     Active Substance: CAPECITABINE
     Indication: NEOPLASM MALIGNANT
     Dosage: 14 DAYS ON 7 OFF
     Route: 048
     Dates: start: 20160726
  3. XELODA [Suspect]
     Active Substance: CAPECITABINE
     Dosage: 14 DAYS ON 7 OFF
     Route: 048
     Dates: start: 20160726

REACTIONS (6)
  - Fatigue [Unknown]
  - Weight decreased [Unknown]
  - Diarrhoea [Unknown]
  - Nausea [Unknown]
  - Decreased appetite [Unknown]
  - Malaise [Unknown]
